FAERS Safety Report 5698441-8 (Version None)
Quarter: 2008Q2

REPORT INFORMATION
  Report Type: 
  Country: None (occurrence: None)
  Receive Date: 20080408
  Receipt Date: 20060623
  Transmission Date: 20081010
  Serious: No
  Sender: FDA-Public Use
  Company Number: US-BAYER-US-2005-023254

PATIENT
  Age: 65 Year
  Sex: Female

DRUGS (1)
  1. CLIMARA [Suspect]
     Route: 062
     Dates: start: 20050801, end: 20051031

REACTIONS (2)
  - BREAST MASS [None]
  - BREAST TENDERNESS [None]
